FAERS Safety Report 25180484 (Version 3)
Quarter: 2025Q3

REPORT INFORMATION
  Report Type: Report from Study
  Country: JP (occurrence: JP)
  Receive Date: 20250409
  Receipt Date: 20250922
  Transmission Date: 20251020
  Serious: Yes (Other)
  Sender: RADIUS PHARM
  Company Number: JP-RADIUS HEALTH INC.-2023JP001289

PATIENT
  Age: 74 Year
  Sex: Female

DRUGS (5)
  1. ABALOPARATIDE [Suspect]
     Active Substance: ABALOPARATIDE
     Indication: Osteoporosis
     Dosage: 80 MICROGRAM, QD
     Route: 058
     Dates: start: 20230222, end: 20230518
  2. ABALOPARATIDE [Suspect]
     Active Substance: ABALOPARATIDE
     Indication: Prophylaxis
     Dosage: 80 MICROGRAM, QD
     Route: 058
     Dates: start: 202502
  3. AMLODIPINE [Concomitant]
     Active Substance: AMLODIPINE BESYLATE
     Indication: Hypertension
     Dosage: 5 MILLIGRAM, QD
     Route: 048
  4. ATORVASTATIN [Concomitant]
     Active Substance: ATORVASTATIN
     Indication: Dyslipidaemia
     Dosage: 5 MILLIGRAM, QD
     Route: 048
  5. TEPRENONE [Concomitant]
     Active Substance: TEPRENONE
     Indication: Product used for unknown indication
     Dosage: 0.5 GRAM, QD
     Route: 048

REACTIONS (12)
  - Arrhythmia [Unknown]
  - Arrhythmia [Recovered/Resolved]
  - Injection site laceration [Not Recovered/Not Resolved]
  - Injection site vesicles [Recovered/Resolved]
  - Injection site vesicles [Recovered/Resolved]
  - Liver function test abnormal [Unknown]
  - Blood pressure increased [Recovered/Resolved]
  - Injection site pain [Recovered/Resolved]
  - Injection site erythema [Not Recovered/Not Resolved]
  - Injection site swelling [Unknown]
  - Injection site swelling [Unknown]
  - Injection site pain [Unknown]

NARRATIVE: CASE EVENT DATE: 20230101
